FAERS Safety Report 22346764 (Version 2)
Quarter: 2023Q2

REPORT INFORMATION
  Report Type: Report from Study
  Country: CL (occurrence: CL)
  Receive Date: 20230520
  Receipt Date: 20230629
  Transmission Date: 20230722
  Serious: Yes (Other)
  Sender: FDA-Public Use
  Company Number: CL-002147023-NVSC2022CL282776

PATIENT
  Age: 59 Year
  Sex: Female

DRUGS (2)
  1. COSENTYX [Suspect]
     Active Substance: SECUKINUMAB
     Indication: Psoriatic arthropathy
     Dosage: 300 MG, QW
     Route: 058
     Dates: start: 20221124
  2. COSENTYX [Suspect]
     Active Substance: SECUKINUMAB
     Dosage: 150 MG, QMO
     Route: 058
     Dates: start: 20230511

REACTIONS (13)
  - Hyperthyroidism [Unknown]
  - Diabetes mellitus [Unknown]
  - Mobility decreased [Unknown]
  - Feeling abnormal [Unknown]
  - Arthritis [Unknown]
  - Illness [Unknown]
  - Osteoarthritis [Unknown]
  - Anaemia [Unknown]
  - Fibromyalgia [Unknown]
  - Hypertension [Unknown]
  - Asthenia [Unknown]
  - Depression [Unknown]
  - Psoriasis [Unknown]
